FAERS Safety Report 7373878-X (Version None)
Quarter: 2011Q1

REPORT INFORMATION
  Report Type: 
  Country: None (occurrence: None)
  Receive Date: 20110325
  Receipt Date: 20110321
  Transmission Date: 20110831
  Serious: No
  Sender: FDA-Public Use
  Company Number: US-PFIZER INC-2011062501

PATIENT
  Sex: Male

DRUGS (2)
  1. VIAGRA [Suspect]
     Indication: ERECTILE DYSFUNCTION
     Dosage: 100 MG, AS NEEDED
  2. VIAGRA [Suspect]
     Dosage: 50 MG, AS NEEDED
     Route: 048

REACTIONS (2)
  - FLUSHING [None]
  - PENIS DISORDER [None]
